FAERS Safety Report 11179937 (Version 2)
Quarter: 2015Q2

REPORT INFORMATION
  Report Type: Spontaneous
  Country: US (occurrence: None)
  Receive Date: 20150609
  Receipt Date: 20150623
  Transmission Date: 20150821
  Serious: Yes (Hospitalization)
  Sender: FDA-Public Use
  Company Number: 1224850-2015-00041

PATIENT
  Age: 50 Year
  Sex: Male
  Weight: 64.5 kg

DRUGS (10)
  1. NIFEDIPINE. [Concomitant]
     Active Substance: NIFEDIPINE
  2. DIAZEPAM. [Concomitant]
     Active Substance: DIAZEPAM
  3. VITAMIN D [Concomitant]
     Active Substance: CHOLECALCIFEROL
  4. TRAZODONE [Concomitant]
     Active Substance: TRAZODONE HYDROCHLORIDE
  5. ALLOPURINOL. [Concomitant]
     Active Substance: ALLOPURINOL
  6. METOPROLOL [Concomitant]
     Active Substance: METOPROLOL
  7. GABAPENTIN. [Concomitant]
     Active Substance: GABAPENTIN
  8. HYDROXYZINE [Concomitant]
     Active Substance: HYDROXYZINE\HYDROXYZINE HYDROCHLORIDE
  9. CALCIUM ACETATE. [Concomitant]
     Active Substance: CALCIUM ACETATE
  10. PHOSLO [Suspect]
     Active Substance: CALCIUM ACETATE
     Route: 048

REACTIONS (4)
  - Peritonitis [None]
  - Vomiting [None]
  - Nausea [None]
  - Dehydration [None]

NARRATIVE: CASE EVENT DATE: 20150202
